FAERS Safety Report 15350314 (Version 2)
Quarter: 2018Q4

REPORT INFORMATION
  Report Type: Report from Study
  Country: US (occurrence: US)
  Receive Date: 20180905
  Receipt Date: 20181019
  Transmission Date: 20190204
  Serious: No
  Sender: FDA-Public Use
  Company Number: PHHY2018US090097

PATIENT
  Sex: Female
  Weight: 58.97 kg

DRUGS (1)
  1. COSENTYX [Suspect]
     Active Substance: SECUKINUMAB
     Indication: PSORIASIS
     Dosage: 1 DF, QMO
     Route: 058
     Dates: start: 201803

REACTIONS (5)
  - Incorrect dose administered [Unknown]
  - Spontaneous haematoma [Unknown]
  - Eye contusion [Unknown]
  - Drug ineffective [Unknown]
  - Psoriasis [Unknown]
